FAERS Safety Report 18933630 (Version 2)
Quarter: 2021Q1

REPORT INFORMATION
  Report Type: Spontaneous
  Country: IR (occurrence: IR)
  Receive Date: 20210224
  Receipt Date: 20210312
  Transmission Date: 20210420
  Serious: Yes (Other)
  Sender: FDA-Public Use
  Company Number: IR-SA-2021SA061806

PATIENT
  Age: 54 Year
  Sex: Male
  Weight: 74 kg

DRUGS (2)
  1. OMNIC [Suspect]
     Active Substance: TAMSULOSIN HYDROCHLORIDE
     Indication: BENIGN PROSTATIC HYPERPLASIA
     Dosage: 0.4 MG, ONCE DAILY, ONGOING FORMULATION UNKNOWN, 0.4 MG (LOT # 20A0233; EXP.DT. 31?DEC?2023)
     Route: 048
     Dates: start: 20210130
  2. PROSTATAN [Concomitant]
     Dosage: UNK
     Route: 065
     Dates: start: 20210130

REACTIONS (2)
  - Renal pain [Recovering/Resolving]
  - Back pain [Recovering/Resolving]

NARRATIVE: CASE EVENT DATE: 20210206
